FAERS Safety Report 16760574 (Version 2)
Quarter: 2019Q3

REPORT INFORMATION
  Report Type: Report from Study
  Country: US (occurrence: US)
  Receive Date: 20190830
  Receipt Date: 20190920
  Transmission Date: 20191005
  Serious: Yes (Hospitalization, Other)
  Sender: FDA-Public Use
  Company Number: US-ADAMAS PHARMA, LLC-2019ADA01865

PATIENT
  Age: 78 Year
  Sex: Female
  Weight: 65.76 kg

DRUGS (8)
  1. GOCOVRI [Suspect]
     Active Substance: AMANTADINE
     Indication: DYSKINESIA
     Dosage: 274 MG, 1X/DAY AT BEDTIME
     Route: 048
     Dates: start: 20181010
  2. MIRAPEX [Suspect]
     Active Substance: PRAMIPEXOLE DIHYDROCHLORIDE
     Dosage: UNK, 3X/DAY
     Dates: end: 20190725
  3. MIRAPEX [Suspect]
     Active Substance: PRAMIPEXOLE DIHYDROCHLORIDE
     Dosage: UNK, 1X/DAY
     Dates: start: 20190726
  4. CARBIDOPA/LEVODOPA [Concomitant]
     Active Substance: CARBIDOPA\LEVODOPA
  5. VITAMIN B12 [Concomitant]
     Active Substance: CYANOCOBALAMIN
  6. GABAPENTIN. [Concomitant]
     Active Substance: GABAPENTIN
  7. VENTOLIN [Concomitant]
     Active Substance: ALBUTEROL SULFATE
     Dosage: UNK, AS NEEDED
  8. ASPIRIN. [Concomitant]
     Active Substance: ASPIRIN

REACTIONS (10)
  - Asthma [Recovered/Resolved]
  - Arrhythmia [Unknown]
  - White blood cell count increased [Unknown]
  - Cardiac failure [Unknown]
  - Balance disorder [Unknown]
  - Vitamin B12 deficiency [Unknown]
  - Blood cholesterol increased [Unknown]
  - Glucose tolerance impaired [Unknown]
  - Dyskinesia [Recovered/Resolved]
  - Product dose omission [Recovered/Resolved]

NARRATIVE: CASE EVENT DATE: 2019
